FAERS Safety Report 13345103 (Version 3)
Quarter: 2018Q1

REPORT INFORMATION
  Report Type: Spontaneous
  Country: US (occurrence: US)
  Receive Date: 20170317
  Receipt Date: 20180125
  Transmission Date: 20180508
  Serious: Yes (Hospitalization, Other)
  Sender: FDA-Public Use
  Company Number: US-PFIZER INC-2017112687

PATIENT
  Age: 74 Year
  Sex: Female
  Weight: 113 kg

DRUGS (1)
  1. XELJANZ XR [Suspect]
     Active Substance: TOFACITINIB CITRATE
     Indication: RHEUMATOID ARTHRITIS
     Dosage: 11 MG, WEEKLY (ONCE A WEEK)
     Route: 048
     Dates: start: 2017

REACTIONS (6)
  - Eating disorder [Unknown]
  - Dry eye [Unknown]
  - Dysgeusia [Unknown]
  - Pneumonia [Unknown]
  - Cataract [Unknown]
  - Weight decreased [Unknown]

NARRATIVE: CASE EVENT DATE: 2017
